FAERS Safety Report 7301223-4 (Version None)
Quarter: 2011Q1

REPORT INFORMATION
  Report Type: 
  Country: None (occurrence: None)
  Receive Date: 20110112
  Receipt Date: 20090406
  Transmission Date: 20110831
  Serious: Yes (Other)
  Sender: FDA-Public Use
  Company Number: THYM-1001002

PATIENT
  Age: 39 Year
  Sex: Female

DRUGS (8)
  1. CELLCEPT (MYCOPHEANOLATE MOFETIL) [Concomitant]
  2. PREDNISONE TAB [Concomitant]
  3. BACTRIM [Concomitant]
  4. THYMOGLOBULIN [Suspect]
  5. VALCYTE [Concomitant]
  6. PROGRAF [Concomitant]
  7. THYMOGLOBULIN [Suspect]
     Indication: RENAL TRANSPLANT
     Dosage: 125 MG, QD, INTRAVENOUS
     Route: 042
     Dates: start: 20090327, end: 20090329
  8. MYCELEX [Concomitant]

REACTIONS (2)
  - KIDNEY TRANSPLANT REJECTION [None]
  - THERAPEUTIC RESPONSE DECREASED [None]
